FAERS Safety Report 16931811 (Version 2)
Quarter: 2019Q4

REPORT INFORMATION
  Report Type: Spontaneous
  Country: CA (occurrence: CA)
  Receive Date: 20191017
  Receipt Date: 20191216
  Transmission Date: 20200122
  Serious: Yes (Hospitalization, Other)
  Sender: FDA-Public Use
  Company Number: CA-PFIZER INC-2019448786

PATIENT
  Age: 48 Year
  Sex: Male

DRUGS (7)
  1. ANDROGEL [Suspect]
     Active Substance: TESTOSTERONE
     Dosage: 5 G, 1X/DAY
     Route: 061
  2. SOMAVERT [Suspect]
     Active Substance: PEGVISOMANT
     Indication: ACROMEGALY
     Dosage: UNK, 1X/DAY
     Route: 058
  3. CLOPIDOGREL BISULFATE. [Suspect]
     Active Substance: CLOPIDOGREL BISULFATE
     Indication: TRANSIENT ISCHAEMIC ATTACK
     Dosage: UNK
  4. SANDOSTATIN [Suspect]
     Active Substance: OCTREOTIDE ACETATE
     Indication: ACROMEGALY
     Dosage: 30 MG, EVERY 3 WEEKS
     Route: 030
  5. DOSTINEX [Suspect]
     Active Substance: CABERGOLINE
     Dosage: UNK
     Route: 048
  6. CODEINE [Suspect]
     Active Substance: CODEINE
     Dosage: UNK
  7. METFORMIN HYDROCHLORIDE. [Suspect]
     Active Substance: METFORMIN HYDROCHLORIDE
     Dosage: 500 MG, 3X/DAY

REACTIONS (16)
  - Pituitary tumour benign [Unknown]
  - Polyp [Unknown]
  - Sleep apnoea syndrome [Unknown]
  - Blood pressure abnormal [Unknown]
  - Dysarthria [Unknown]
  - Osteoarthritis [Unknown]
  - Drug ineffective [Unknown]
  - Diabetes mellitus [Unknown]
  - Minimal residual disease [Unknown]
  - Weight abnormal [Unknown]
  - Erectile dysfunction [Unknown]
  - Pituitary enlargement [Unknown]
  - Hyperhidrosis [Unknown]
  - Joint swelling [Unknown]
  - Prognathism [Unknown]
  - Transient ischaemic attack [Unknown]
